FAERS Safety Report 5513451-9 (Version None)
Quarter: 2007Q4

REPORT INFORMATION
  Report Type: 
  Country: None (occurrence: None)
  Receive Date: 20071112
  Receipt Date: 20071031
  Transmission Date: 20080405
  Serious: Yes (Other)
  Sender: FDA-Public Use
  Company Number: AU-PFIZER INC-2007092061

PATIENT
  Age: 39 Year
  Sex: Female

DRUGS (3)
  1. DOSTINEX [Suspect]
     Indication: PITUITARY TUMOUR BENIGN
  2. LEVOTHYROXINE SODIUM [Concomitant]
  3. MINAX [Concomitant]

REACTIONS (2)
  - ARRHYTHMIA [None]
  - ELECTROCARDIOGRAM QT PROLONGED [None]
